FAERS Safety Report 6000164-2 (Version None)
Quarter: 2008Q4

REPORT INFORMATION
  Report Type: 
  Country: None (occurrence: None)
  Receive Date: 20081215
  Receipt Date: 20081208
  Transmission Date: 20090506
  Serious: No
  Sender: FDA-Public Use
  Company Number: US-JNJFOC-20081102081

PATIENT
  Sex: Male
  Weight: 104.33 kg

DRUGS (3)
  1. DURAGESIC-100 [Suspect]
     Indication: BACK PAIN
     Route: 062
     Dates: start: 20011201
  2. PROTONIX [Concomitant]
     Indication: GASTROOESOPHAGEAL REFLUX DISEASE
     Route: 048
     Dates: start: 19980101
  3. MANY UNSPECIFIED MEDICATIONS [Concomitant]
     Route: 065

REACTIONS (7)
  - APPLICATION SITE REACTION [None]
  - APPLICATION SITE ULCER [None]
  - BLOOD CHOLESTEROL INCREASED [None]
  - DRUG ADMINISTERED AT INAPPROPRIATE SITE [None]
  - HYPERTENSION [None]
  - INSOMNIA [None]
  - PAIN [None]
